FAERS Safety Report 8612923-8 (Version None)
Quarter: 2012Q3

REPORT INFORMATION
  Report Type: 
  Country: None (occurrence: None)
  Receive Date: 20120822
  Receipt Date: 20120320
  Transmission Date: 20120928
  Serious: No
  Sender: FDA-Public Use
  Company Number: US-ALLERGAN-1204003US

PATIENT
  Sex: Female

DRUGS (2)
  1. SANCTURA XR [Suspect]
     Indication: URINARY INCONTINENCE
     Dosage: 1 TABLET, QAM
     Route: 048
     Dates: start: 20111201
  2. SANCTURA XR [Suspect]
     Dosage: UNK
     Route: 048
     Dates: start: 20090101

REACTIONS (2)
  - CONSTIPATION [None]
  - DRY MOUTH [None]
